FAERS Safety Report 5936831-6 (Version None)
Quarter: 2008Q4

REPORT INFORMATION
  Report Type: 
  Country: None (occurrence: None)
  Receive Date: 20081029
  Receipt Date: 20081021
  Transmission Date: 20090506
  Serious: Yes (Death)
  Sender: FDA-Public Use
  Company Number: 14836

PATIENT
  Age: 63 Year
  Sex: Male
  Weight: 106.5953 kg

DRUGS (5)
  1. MORPHINE SULFATE [Suspect]
     Indication: CANCER PAIN
     Dosage: 3 DOSES ORALLY
     Route: 048
     Dates: start: 20080202, end: 20080204
  2. LIPITOR [Concomitant]
  3. LOTREL [Concomitant]
  4. TRAMADOL HCL [Concomitant]
  5. CYMBALTA [Concomitant]

REACTIONS (5)
  - HYPERSOMNIA [None]
  - MALIGNANT NEOPLASM PROGRESSION [None]
  - MULTI-ORGAN FAILURE [None]
  - PRODUCT QUALITY ISSUE [None]
  - PROSTATE CANCER [None]
